FAERS Safety Report 7084665-4 (Version None)
Quarter: 2010Q4

REPORT INFORMATION
  Report Type: 
  Country: None (occurrence: None)
  Receive Date: 20101104
  Receipt Date: 20101102
  Transmission Date: 20110411
  Serious: Yes (Hospitalization)
  Sender: FDA-Public Use
  Company Number: UA-PFIZER INC-2010135996

PATIENT
  Age: 57 Year
  Sex: Female
  Weight: 64 kg

DRUGS (13)
  1. BLINDED *METHOTREXATE SODIUM [Suspect]
     Indication: RHEUMATOID ARTHRITIS
     Dosage: CP-690,550/PLACEBO; TABLETS, BID
     Route: 048
     Dates: start: 20100830, end: 20101024
  2. BLINDED *NO SUBJECT DRUG [Suspect]
     Indication: RHEUMATOID ARTHRITIS
     Dosage: CP-690,550/PLACEBO; TABLETS, BID
     Route: 048
     Dates: start: 20100830, end: 20101024
  3. BLINDED *PLACEBO [Suspect]
     Indication: RHEUMATOID ARTHRITIS
     Dosage: CP-690,550/PLACEBO; TABLETS, BID
     Route: 048
     Dates: start: 20100830, end: 20101024
  4. BLINDED CP-690,550 [Suspect]
     Indication: RHEUMATOID ARTHRITIS
     Dosage: CP-690,550/PLACEBO; TABLETS, BID
     Route: 048
     Dates: start: 20100830, end: 20101024
  5. BLINDED *METHOTREXATE SODIUM [Suspect]
     Dosage: METHOTREXATE/PLACEBO; CAPSULES, ONCE/WEEK
     Route: 048
     Dates: start: 20100830, end: 20101018
  6. BLINDED *NO SUBJECT DRUG [Suspect]
     Dosage: METHOTREXATE/PLACEBO; CAPSULES, ONCE/WEEK
     Route: 048
     Dates: start: 20100830, end: 20101018
  7. BLINDED *PLACEBO [Suspect]
     Dosage: METHOTREXATE/PLACEBO; CAPSULES, ONCE/WEEK
     Route: 048
     Dates: start: 20100830, end: 20101018
  8. BLINDED CP-690,550 [Suspect]
     Dosage: METHOTREXATE/PLACEBO; CAPSULES, ONCE/WEEK
     Route: 048
     Dates: start: 20100830, end: 20101018
  9. METYPRED ^ORION^ [Suspect]
     Indication: RHEUMATOID ARTHRITIS
     Dosage: 4 MG, 1X/DAY
     Route: 048
     Dates: start: 20100401
  10. ROFECOXIB [Concomitant]
     Indication: RHEUMATOID ARTHRITIS
     Dosage: 25 MG, 1X/DAY
     Route: 048
     Dates: start: 20100601
  11. STRONTIUM RANELATE [Concomitant]
     Indication: OSTEOPOROSIS
     Dosage: 2 G, 1X/DAY
     Route: 048
     Dates: start: 20100601
  12. SILIMARIN [Concomitant]
     Indication: PROPHYLAXIS
     Dosage: 1 TAB, 3X/DAY
     Route: 048
     Dates: start: 20100701
  13. CALCIUM/MINERALS/VITAMIN D [Concomitant]
     Indication: OSTEOPOROSIS
     Dosage: 1 TAB, 1X/DAY
     Route: 048

REACTIONS (1)
  - RHEUMATOID VASCULITIS [None]
